FAERS Safety Report 24732360 (Version 1)
Quarter: 2024Q4

REPORT INFORMATION
  Report Type: Spontaneous
  Country: RS (occurrence: RS)
  Receive Date: 20241213
  Receipt Date: 20241213
  Transmission Date: 20250115
  Serious: Yes (Hospitalization)
  Sender: BOEHRINGER INGELHEIM
  Company Number: RS-BoehringerIngelheim-2024-BI-067792

PATIENT
  Age: 69 Year
  Sex: Female

DRUGS (3)
  1. OFEV [Suspect]
     Active Substance: NINTEDANIB
     Indication: Dermatomyositis
     Dates: start: 20220422
  2. Ciklofosfamid [Concomitant]
     Indication: Product used for unknown indication
     Dates: start: 20220413, end: 20221129
  3. mikofenolat mofetil [Concomitant]
     Indication: Product used for unknown indication
     Dates: start: 20221129

REACTIONS (11)
  - Colon cancer [Unknown]
  - Skin disorder [Unknown]
  - Arthritis [Unknown]
  - Rash [Unknown]
  - Diabetes mellitus [Unknown]
  - Condition aggravated [Unknown]
  - Procedural complication [Unknown]
  - Lung diffusion test decreased [Unknown]
  - Forced vital capacity decreased [Unknown]
  - Forced expiratory volume decreased [Unknown]
  - Intentional product use issue [Unknown]

NARRATIVE: CASE EVENT DATE: 20230901
